FAERS Safety Report 6732736-1 (Version None)
Quarter: 2010Q2

REPORT INFORMATION
  Report Type: 
  Country: None (occurrence: None)
  Receive Date: 20100514
  Receipt Date: 20100429
  Transmission Date: 20101027
  Serious: Yes (Death)
  Sender: FDA-Public Use
  Company Number: IDA-00355

PATIENT
  Age: 46 Year
  Sex: Female

DRUGS (5)
  1. PROPRANOLOL [Suspect]
     Indication: THYROID DISORDER
     Dosage: 20 MG Q8II, ORAL FORMULATION
     Route: 048
  2. DEXAMETHASONE [Concomitant]
  3. PROPYLTHIOURACIL [Concomitant]
  4. POTASSIUM IODIDE [Concomitant]
  5. ACETAMINOPHEN [Concomitant]

REACTIONS (26)
  - AGGRESSION [None]
  - AUTOIMMUNE MYOCARDITIS [None]
  - BASEDOW'S DISEASE [None]
  - BLOOD PRESSURE SYSTOLIC INCREASED [None]
  - CARDIAC FAILURE CONGESTIVE [None]
  - COMA [None]
  - CONTUSION [None]
  - DISORIENTATION [None]
  - EXCORIATION [None]
  - EXOPHTHALMOS [None]
  - FALL [None]
  - GOITRE [None]
  - HYPERHIDROSIS [None]
  - HYPERPYREXIA [None]
  - HYPERTHYROIDISM [None]
  - HYPOTENSION [None]
  - NECK INJURY [None]
  - OLIGURIA [None]
  - PERIPHERAL COLDNESS [None]
  - PULMONARY CONGESTION [None]
  - PULMONARY OEDEMA [None]
  - RESPIRATORY RATE INCREASED [None]
  - SKIN WARM [None]
  - TACHYCARDIA [None]
  - THYROTOXIC CRISIS [None]
  - TREMOR [None]
